FAERS Safety Report 23742085 (Version 5)
Quarter: 2024Q2

REPORT INFORMATION
  Report Type: Other
  Country: CZ (occurrence: CZ)
  Receive Date: 20240415
  Receipt Date: 20240613
  Transmission Date: 20240715
  Serious: Yes (Life-Threatening, Hospitalization, Other)
  Sender: FDA-Public Use
  Company Number: None

PATIENT
  Age: 33 Year
  Sex: Female

DRUGS (16)
  1. IBUPROFEN [Suspect]
     Active Substance: IBUPROFEN
     Indication: Back pain
     Dosage: UNK (HIGH DOSES)
     Route: 065
  2. IBUPROFEN [Suspect]
     Active Substance: IBUPROFEN
     Indication: Headache
     Dosage: UNK
     Route: 065
  3. IBUPROFEN AND PSEUDOEPHEDRINE HYDROCHLORIDE [Suspect]
     Active Substance: IBUPROFEN\PSEUDOEPHEDRINE HYDROCHLORIDE
     Indication: Headache
     Dosage: UNK
     Route: 065
  4. IBUPROFEN AND PSEUDOEPHEDRINE HYDROCHLORIDE [Suspect]
     Active Substance: IBUPROFEN\PSEUDOEPHEDRINE HYDROCHLORIDE
     Indication: Back pain
  5. VALERIAN [Concomitant]
     Active Substance: VALERIAN
     Indication: Product used for unknown indication
     Dosage: UNK, QD (UNK, HS)
     Route: 065
  6. VALERIAN [Concomitant]
     Active Substance: VALERIAN
     Dosage: UNK, QD (AT NIGHT)
     Route: 065
  7. VALERIAN [Concomitant]
     Active Substance: VALERIAN
     Dosage: UNK, QD (AT NIGHT)
     Route: 065
  8. VALERIAN [Concomitant]
     Active Substance: VALERIAN
     Dosage: UNK, QD (AT NIGHT)
     Route: 065
  9. VALERIAN [Concomitant]
     Active Substance: VALERIAN
     Dosage: UNK, QD (AT NIGHT)
     Route: 065
  10. VALERIAN [Concomitant]
     Active Substance: VALERIAN
     Dosage: UNK, QD (AT NIGHT)
     Route: 065
  11. ALPRAZOLAM [Concomitant]
     Active Substance: ALPRAZOLAM
     Indication: Product used for unknown indication
     Dosage: UNK, QD (AT NIGHT)
     Route: 065
  12. ALPRAZOLAM [Concomitant]
     Active Substance: ALPRAZOLAM
     Dosage: UNK, QD (AT NIGHT)
     Route: 065
  13. ALPRAZOLAM [Concomitant]
     Active Substance: ALPRAZOLAM
     Dosage: UNK, QD (UNK, HS, AT NIGHT))
     Route: 065
  14. ALPRAZOLAM [Concomitant]
     Active Substance: ALPRAZOLAM
     Dosage: UNK, QD (AT NIGHT)
     Route: 065
  15. ALPRAZOLAM [Concomitant]
     Active Substance: ALPRAZOLAM
     Dosage: UNK, QD (AT NIGHT)
     Route: 065
  16. ALPRAZOLAM [Concomitant]
     Active Substance: ALPRAZOLAM
     Dosage: UNK, QD (AT NIGHT)
     Route: 065

REACTIONS (12)
  - Hypochloraemia [Unknown]
  - Hyponatraemia [Unknown]
  - Hyperkalaemia [Unknown]
  - Oedematous kidney [Recovered/Resolved]
  - Anuria [Recovered/Resolved]
  - Hypervolaemia [Recovered/Resolved]
  - Renal tubular necrosis [Recovered/Resolved]
  - Nephropathy toxic [Recovered/Resolved]
  - Renal failure [Recovered/Resolved]
  - Vomiting [Recovered/Resolved]
  - Dyspnoea [Recovered/Resolved]
  - Diarrhoea [Recovered/Resolved]
